FAERS Safety Report 13758722 (Version 1)
Quarter: 2017Q3

REPORT INFORMATION
  Report Type: Spontaneous
  Country: IT (occurrence: IT)
  Receive Date: 20170717
  Receipt Date: 20170717
  Transmission Date: 20171127
  Serious: Yes (Other)
  Sender: FDA-Public Use
  Company Number: IT-AUROBINDO-AUR-APL-2017-36934

PATIENT
  Age: 71 Year
  Sex: Female

DRUGS (1)
  1. CLOPIDOGREL [Suspect]
     Active Substance: CLOPIDOGREL BISULFATE
     Indication: MYOCARDIAL ISCHAEMIA
     Dosage: 75 MG, DAILY
     Route: 048

REACTIONS (6)
  - Abdominal pain [Unknown]
  - Flushing [Unknown]
  - Epistaxis [Unknown]
  - Pruritus [Unknown]
  - Diarrhoea [Unknown]
  - Haematuria [Unknown]

NARRATIVE: CASE EVENT DATE: 20170503
